FAERS Safety Report 11846054 (Version 2)
Quarter: 2016Q3

REPORT INFORMATION
  Report Type: Spontaneous
  Country: US (occurrence: US)
  Receive Date: 20151217
  Receipt Date: 20160812
  Transmission Date: 20161109
  Serious: Yes (Hospitalization, Other)
  Sender: FDA-Public Use
  Company Number: US-TEVA-618193USA

PATIENT
  Age: 68 Year

DRUGS (12)
  1. CYTOXAN [Suspect]
     Active Substance: CYCLOPHOSPHAMIDE
     Route: 065
     Dates: start: 20150929
  2. TACROLIMUS. [Suspect]
     Active Substance: TACROLIMUS
     Dates: start: 20151129
  3. ATENOLOL. [Concomitant]
     Active Substance: ATENOLOL
     Indication: HYPERTENSION
     Route: 048
  4. FLUDARABINE [Suspect]
     Active Substance: FLUDARABINE PHOSPHATE
     Route: 065
     Dates: start: 20150929
  5. VITAMIN B12 [Concomitant]
     Active Substance: CYANOCOBALAMIN
     Route: 048
     Dates: start: 20151020, end: 20151119
  6. MULTIVITAMIN [Concomitant]
     Active Substance: VITAMINS
     Route: 048
     Dates: start: 20151020, end: 20151119
  7. CYTARABINE. [Suspect]
     Active Substance: CYTARABINE
     Route: 065
     Dates: start: 20150320
  8. VITAMIN D3 [Concomitant]
     Active Substance: CHOLECALCIFEROL
     Route: 048
     Dates: start: 20151020, end: 20151119
  9. ACYCLOVIR. [Concomitant]
     Active Substance: ACYCLOVIR
     Dosage: FOR EVERY 12 HOURS
     Route: 048
     Dates: start: 20151020, end: 20151119
  10. DAUNORUBICIN [Suspect]
     Active Substance: DAUNORUBICIN
     Route: 065
     Dates: start: 20150320
  11. MYCOPHENOLATE MOFETIL. [Suspect]
     Active Substance: MYCOPHENOLATE MOFETIL
     Route: 065
     Dates: start: 20150929
  12. URSODIOL. [Concomitant]
     Active Substance: URSODIOL
     Dosage: 1 CAPSULE EVERY 8 HOURS
     Route: 048
     Dates: start: 20151020, end: 20151119

REACTIONS (11)
  - Febrile neutropenia [Recovered/Resolved]
  - Bacteraemia [Recovered/Resolved]
  - Syncope [Recovered/Resolved]
  - Hypomagnesaemia [Unknown]
  - Rash maculo-papular [Not Recovered/Not Resolved]
  - Pruritus [Recovering/Resolving]
  - Acute graft versus host disease in skin [Unknown]
  - Asthenia [Recovering/Resolving]
  - Decreased appetite [Recovering/Resolving]
  - Funguria [Recovered/Resolved]
  - Drug hypersensitivity [Recovered/Resolved]

NARRATIVE: CASE EVENT DATE: 20150320
